FAERS Safety Report 8967900 (Version 1)
Quarter: 2012Q4

REPORT INFORMATION
  Report Type: 
  Country: US (occurrence: US)
  Receive Date: 20121218
  Receipt Date: 20121218
  Transmission Date: 20130627
  Serious: No
  Sender: FDA-Public Use
  Company Number: US-GLAXOSMITHKLINE-A0965180A

PATIENT
  Age: 70 Year
  Sex: Female

DRUGS (5)
  1. COREG CR [Suspect]
     Indication: PRODUCT USED FOR UNKNOWN INDICATION
     Dosage: 10MG Per day
     Route: 048
  2. LIPITOR [Concomitant]
  3. ASPIRIN [Concomitant]
  4. SYNTHROID [Concomitant]
  5. PLAVIX [Concomitant]

REACTIONS (3)
  - Alopecia [Unknown]
  - Alopecia [Unknown]
  - Alopecia [Unknown]
